FAERS Safety Report 13762951 (Version 1)
Quarter: 2017Q3

REPORT INFORMATION
  Report Type: Spontaneous
  Country: US (occurrence: US)
  Receive Date: 20170718
  Receipt Date: 20170718
  Transmission Date: 20171127
  Serious: Yes (Life-Threatening, Hospitalization)
  Sender: FDA-Public Use
  Company Number: None

PATIENT
  Sex: Female
  Weight: 122.7 kg

DRUGS (1)
  1. WARFARIN [Suspect]
     Active Substance: WARFARIN
     Indication: PULMONARY EMBOLISM
     Dosage: ?          OTHER DOSE:MG;?
     Route: 048

REACTIONS (7)
  - Vomiting [None]
  - Cerebral haematoma [None]
  - Subdural haemorrhage [None]
  - Seizure [None]
  - Haemorrhage intracranial [None]
  - Headache [None]
  - Asthenia [None]
